FAERS Safety Report 4505478-0 (Version None)
Quarter: 2004Q4

REPORT INFORMATION
  Report Type: 
  Country: None (occurrence: None)
  Receive Date: 20041118
  Receipt Date: 20041118
  Transmission Date: 20050328
  Serious: Yes (Hospitalization)
  Sender: FDA-Public Use
  Company Number: None

PATIENT
  Age: 15 Month
  Sex: Male
  Weight: 8.6637 kg

DRUGS (3)
  1. IBUPROFEN [Suspect]
     Indication: PYREXIA
     Dosage: PO Q6 H
     Route: 048
     Dates: start: 20040420, end: 20040421
  2. AMOXICILLIN [Suspect]
     Indication: PYREXIA
     Dosage: PO BID
     Route: 048
     Dates: start: 20040424, end: 20040425
  3. TYLENOL (CAPLET) [Concomitant]

REACTIONS (4)
  - HYPERKALAEMIA [None]
  - NEPHRITIS INTERSTITIAL [None]
  - RENAL FAILURE ACUTE [None]
  - ULTRASOUND SCAN ABNORMAL [None]
